FAERS Safety Report 4391585-2 (Version None)
Quarter: 2004Q3

REPORT INFORMATION
  Report Type: 
  Country: None (occurrence: None)
  Receive Date: 20040701
  Receipt Date: 20040617
  Transmission Date: 20050211
  Serious: Yes (Hospitalization)
  Sender: FDA-Public Use
  Company Number: 04P-163-0264193-00

PATIENT
  Age: 58 Year
  Sex: Female
  Weight: 52.1637 kg

DRUGS (9)
  1. HUMIRA [Suspect]
     Indication: RHEUMATOID ARTHRITIS
     Dosage: 40 MG, 1 IN 2 WK, SUBCUTANEOUS
     Route: 058
     Dates: start: 20040408
  2. METHOTREXATE [Concomitant]
  3. DIFLUNISAL [Concomitant]
  4. FOLIC ACID [Concomitant]
  5. DIAZEPAM [Concomitant]
  6. PREDNISONE [Concomitant]
  7. PEDIACARE COUGH-COLD [Concomitant]
  8. SERTRALINE HYDROCHLORIDE [Concomitant]
  9. OXYCODONE AND ACETAMINOPHEN [Concomitant]

REACTIONS (8)
  - ANAEMIA [None]
  - ASTHENIA [None]
  - DIARRHOEA [None]
  - EMPHYSEMA [None]
  - HYPOKALAEMIA [None]
  - PNEUMONIA [None]
  - RENAL CYST [None]
  - THYROID DISORDER [None]
